FAERS Safety Report 6292142-3 (Version None)
Quarter: 2009Q3

REPORT INFORMATION
  Report Type: 
  Country: None (occurrence: None)
  Receive Date: 20090731
  Receipt Date: 20090722
  Transmission Date: 20100115
  Serious: Yes (Other)
  Sender: FDA-Public Use
  Company Number: BR-B.I. PHARMACEUTICALS,INC./RIDGEFIELD-2009-BR-00751BR

PATIENT
  Age: 63 Year
  Sex: Female

DRUGS (1)
  1. ATENSINA [Suspect]
     Indication: HYPERTENSION
     Dosage: RT
     Route: 048
     Dates: start: 20010101

REACTIONS (2)
  - BLOOD PRESSURE INCREASED [None]
  - DRUG INEFFECTIVE [None]
